FAERS Safety Report 7634933-X (Version None)
Quarter: 2011Q3

REPORT INFORMATION
  Report Type: 
  Country: None (occurrence: None)
  Receive Date: 20110726
  Receipt Date: 20110719
  Transmission Date: 20111222
  Serious: Yes (Hospitalization, Other)
  Sender: FDA-Public Use
  Company Number: US-ASTRAZENECA-2006UW22654

PATIENT
  Age: 20869 Day
  Sex: Female
  Weight: 82.6 kg

DRUGS (15)
  1. LOPID [Concomitant]
     Route: 048
     Dates: start: 20021022
  2. EFFEXOR [Concomitant]
     Route: 048
     Dates: start: 20021022
  3. PROVIGIL [Concomitant]
     Route: 048
     Dates: start: 20021022
  4. PERCOCET [Concomitant]
     Indication: PAIN
     Route: 048
     Dates: start: 20050930
  5. SEROQUEL [Suspect]
     Dosage: 100 MG TO 400 MG
     Route: 048
     Dates: start: 20021022
  6. CLARITIN [Concomitant]
     Route: 048
     Dates: start: 20030312
  7. BEXTRA [Concomitant]
     Route: 048
     Dates: start: 20021022
  8. SEROQUEL [Suspect]
     Route: 048
  9. ALBUTEROL SULFATE AUTOHALER [Concomitant]
     Route: 048
     Dates: start: 20010312
  10. PREVACID [Concomitant]
     Route: 048
     Dates: start: 20010312
  11. CLOZAPINE [Concomitant]
  12. DITROPAN [Concomitant]
     Route: 048
     Dates: start: 20021022
  13. LEXAPRO [Concomitant]
     Route: 048
     Dates: start: 20030919
  14. PROTONICS [Concomitant]
     Route: 048
     Dates: start: 20021022
  15. AMBIEN [Concomitant]
     Route: 048
     Dates: start: 20030919

REACTIONS (8)
  - PANCREATIC DISORDER [None]
  - DIABETIC NEUROPATHY [None]
  - DIABETIC KETOACIDOSIS [None]
  - PANCREATITIS [None]
  - APPENDICITIS [None]
  - DIABETES MELLITUS [None]
  - GLYCOSURIA [None]
  - HYPERGLYCAEMIA [None]
